FAERS Safety Report 20567863 (Version 1)
Quarter: 2022Q1

REPORT INFORMATION
  Report Type: Spontaneous
  Country: US (occurrence: None)
  Receive Date: 20220308
  Receipt Date: 20220308
  Transmission Date: 20220423
  Serious: No
  Sender: FDA-Public Use
  Company Number: None

PATIENT
  Age: 57 Year
  Sex: Female
  Weight: 71.1 kg

DRUGS (1)
  1. ICY HOT MEDICATED NO MESS APPLICATOR [Suspect]
     Active Substance: MENTHOL
     Indication: Back pain
     Dosage: OTHER QUANTITY : 1 1;?FREQUENCY : DAILY;?
     Route: 061
     Dates: start: 20020306, end: 20020306

REACTIONS (1)
  - Erythema [None]

NARRATIVE: CASE EVENT DATE: 20220306
